FAERS Safety Report 6793497-3 (Version None)
Quarter: 2010Q2

REPORT INFORMATION
  Report Type: 
  Country: None (occurrence: None)
  Receive Date: 20100624
  Receipt Date: 20100624
  Transmission Date: 20101027
  Serious: Yes (Other)
  Sender: FDA-Public Use
  Company Number: US-MYLANLABS-2010S1006527

PATIENT
  Age: 25 Year
  Sex: Male
  Weight: 64.86 kg

DRUGS (18)
  1. CLOZAPINE [Suspect]
     Indication: PSYCHOTIC DISORDER
     Route: 048
     Dates: start: 20100406, end: 20100414
  2. CLOZAPINE [Suspect]
     Route: 048
     Dates: start: 20100415, end: 20100421
  3. CLOZAPINE [Suspect]
     Route: 048
     Dates: start: 20100422, end: 20100518
  4. DIAZEPAM [Concomitant]
     Dates: start: 20100320
  5. OMEPRAZOLE [Concomitant]
     Dates: start: 20100320
  6. MIRALAX [Concomitant]
     Dates: start: 20100320
  7. TEMAZEPAM [Concomitant]
     Indication: INSOMNIA
     Dates: start: 20100320
  8. CALCIUM CARBONATE [Concomitant]
     Dates: start: 20100320
  9. DIVALPROEX SODIUM [Concomitant]
     Dates: start: 20100320, end: 20100421
  10. DIVALPROEX SODIUM [Concomitant]
     Dates: start: 20100422, end: 20100509
  11. DIVALPROEX SODIUM [Concomitant]
     Dates: start: 20100422, end: 20100409
  12. DIVALPROEX SODIUM [Concomitant]
     Dates: start: 20100510, end: 20100520
  13. DIVALPROEX SODIUM [Concomitant]
     Dates: start: 20100521
  14. LEVETIRACETAM [Concomitant]
     Dates: start: 20100320, end: 20100519
  15. LEVETIRACETAM [Concomitant]
     Dates: start: 20100520
  16. PHENYTOIN [Concomitant]
     Dates: start: 20100320, end: 20100323
  17. PHENYTOIN [Concomitant]
     Dates: start: 20100324, end: 20100520
  18. PHENYTOIN [Concomitant]
     Dates: start: 20100521

REACTIONS (2)
  - CONVULSION [None]
  - GRANULOCYTOPENIA [None]
